FAERS Safety Report 9972844 (Version 1)
Quarter: 2014Q1

REPORT INFORMATION
  Report Type: Spontaneous
  Country: JP (occurrence: JP)
  Receive Date: 20140306
  Receipt Date: 20140306
  Transmission Date: 20141002
  Serious: Yes (Hospitalization, Other)
  Sender: FDA-Public Use
  Company Number: JP-EISAI INC-E7389-04825-SPO-JP

PATIENT
  Sex: 0

DRUGS (2)
  1. HALAVEN [Suspect]
     Indication: BREAST CANCER RECURRENT
     Dosage: 1.4 MG/M2
     Route: 041
     Dates: start: 20131119, end: 20140204
  2. HERCEPTIN [Concomitant]
     Indication: BREAST CANCER
     Dosage: UNKNOWN
     Route: 041

REACTIONS (2)
  - Pulmonary embolism [Unknown]
  - Pneumonia [Recovered/Resolved]
